FAERS Safety Report 7221235-9 (Version None)
Quarter: 2011Q1

REPORT INFORMATION
  Report Type: 
  Country: None (occurrence: None)
  Receive Date: 20110112
  Receipt Date: 20110103
  Transmission Date: 20110831
  Serious: Yes (Hospitalization)
  Sender: FDA-Public Use
  Company Number: FR-SANOFI-AVENTIS-2011SA000384

PATIENT
  Age: 35 Year
  Sex: Female

DRUGS (6)
  1. CERAZETTE [Concomitant]
     Route: 065
     Dates: start: 20000101
  2. DEROXAT [Concomitant]
     Route: 065
  3. HUMALOG MIX [Concomitant]
     Route: 065
  4. PLAQUENIL [Suspect]
     Route: 048
     Dates: start: 20101102, end: 20101107
  5. INEGY [Concomitant]
     Route: 065
  6. HUMALOG [Concomitant]
     Dosage: 12 IU ON THE MORNING AND 4 IU ON THE EVENING
     Route: 065

REACTIONS (1)
  - GENITAL HAEMORRHAGE [None]
